FAERS Safety Report 11750523 (Version 1)
Quarter: 2015Q4

REPORT INFORMATION
  Report Type: Spontaneous
  Country: IT (occurrence: IT)
  Receive Date: 20151118
  Receipt Date: 20151118
  Transmission Date: 20160304
  Serious: Yes (Other)
  Sender: FDA-Public Use
  Company Number: IT-PFIZER INC-2015390800

PATIENT
  Sex: Female

DRUGS (1)
  1. LYRICA [Suspect]
     Active Substance: PREGABALIN
     Indication: HEMIPARESIS
     Dosage: UNK

REACTIONS (3)
  - Product use issue [Unknown]
  - Infarction [Unknown]
  - Overweight [Unknown]

NARRATIVE: CASE EVENT DATE: 201502
